FAERS Safety Report 6733454-6 (Version None)
Quarter: 2010Q2

REPORT INFORMATION
  Report Type: 
  Country: None (occurrence: None)
  Receive Date: 20100518
  Receipt Date: 20100507
  Transmission Date: 20101027
  Serious: Yes (Other)
  Sender: FDA-Public Use
  Company Number: AVE_01804_2010

PATIENT
  Age: 87 Year
  Sex: Female

DRUGS (2)
  1. CLONIDINE [Suspect]
     Indication: HYPERTENSION
     Dosage: 0.1 MG QD, VIA 1/WEEKLY PATCH TRANSDERMAL
     Route: 062
     Dates: start: 20100416
  2. ANAVENOL [Concomitant]

REACTIONS (1)
  - DERMATITIS CONTACT [None]
